FAERS Safety Report 15156858 (Version 3)
Quarter: 2019Q1

REPORT INFORMATION
  Report Type: Spontaneous
  Country: DE (occurrence: DE)
  Receive Date: 20180718
  Receipt Date: 20190123
  Transmission Date: 20190417
  Serious: Yes (Hospitalization)
  Sender: FDA-Public Use
  Company Number: DE-TEVA-2018-DE-927136

PATIENT

DRUGS (7)
  1. MIRTAZAPINE. [Suspect]
     Active Substance: MIRTAZAPINE
     Indication: PRODUCT USED FOR UNKNOWN INDICATION
     Dosage: UNK
     Route: 065
     Dates: start: 20180409, end: 20180416
  2. CGLENMARK 30 MG MAGENSAFTRESISTENTE HARTKAPSELN [Suspect]
     Dosage: 30 MILLIGRAM DAILY;
     Route: 048
  3. CGLENMARK 30 MG MAGENSAFTRESISTENTE HARTKAPSELN [Suspect]
     Dosage: 120 MILLIGRAM DAILY;
  4. TOPIRAMATE. [Suspect]
     Active Substance: TOPIRAMATE
     Indication: PRODUCT USED FOR UNKNOWN INDICATION
     Dosage: UNK
     Route: 065
     Dates: start: 20180409, end: 20180416
  5. CGLENMARK 30 MG MAGENSAFTRESISTENTE HARTKAPSELN [DULOXETINE HYDROCHLORIDE] [Suspect]
     Active Substance: DULOXETINE HYDROCHLORIDE
     Indication: MIGRAINE PROPHYLAXIS
     Dosage: 100 MILLIGRAM DAILY;
     Route: 048
  6. DULOXETIN GLENMARK 60 MG MAGENSAFTERISTENTE HARTKAPSELN [Suspect]
     Active Substance: DULOXETINE HYDROCHLORIDE
     Indication: MIGRAINE PROPHYLAXIS
     Dosage: 60 MILLIGRAM DAILY;
     Route: 048
     Dates: end: 20180409
  7. CGLENMARK 30 MG MAGENSAFTRESISTENTE HARTKAPSELN [DULOXETINE HYDROCHLORIDE] [Suspect]
     Active Substance: DULOXETINE HYDROCHLORIDE
     Dosage: 30 MILLIGRAM DAILY;
     Route: 048
     Dates: start: 20180411, end: 20180416

REACTIONS (7)
  - Sleep disorder [Not Recovered/Not Resolved]
  - Hyperhidrosis [Not Recovered/Not Resolved]
  - Drug withdrawal syndrome [Not Recovered/Not Resolved]
  - Product use in unapproved indication [Unknown]
  - Hospitalisation [Unknown]
  - Visual impairment [Recovering/Resolving]
  - Dizziness [Recovering/Resolving]

NARRATIVE: CASE EVENT DATE: 20180409
